FAERS Safety Report 8963663 (Version 1)
Quarter: 2012Q4

REPORT INFORMATION
  Report Type: 
  Country: US (occurrence: US)
  Receive Date: 20121214
  Receipt Date: 20121214
  Transmission Date: 20130627
  Serious: Yes (Other)
  Sender: FDA-Public Use
  Company Number: US-BAYER-2012-130010

PATIENT
  Age: 39 Year
  Sex: Female
  Weight: 80.27 kg

DRUGS (3)
  1. YAZ [Suspect]
  2. YASMIN [Suspect]
     Indication: CONTRACEPTION
     Dosage: UNK
     Dates: start: 20050823, end: 20110411
  3. LYRICA [Concomitant]
     Indication: PAIN
     Dosage: 25 mg AM (interpreted as morning); 50 mg HS (interpreted as hour of sleep)

REACTIONS (3)
  - Thrombophlebitis superficial [Recovered/Resolved]
  - Thrombophlebitis superficial [None]
  - Thrombophlebitis superficial [Recovered/Resolved]
